FAERS Safety Report 13900831 (Version 2)
Quarter: 2017Q3

REPORT INFORMATION
  Report Type: Spontaneous
  Country: JP (occurrence: JP)
  Receive Date: 20170824
  Receipt Date: 20170907
  Transmission Date: 20171127
  Serious: Yes (Death)
  Sender: FDA-Public Use
  Company Number: JP-EISAI MEDICAL RESEARCH-EC-2017-030539

PATIENT
  Age: 67 Year
  Sex: Male

DRUGS (17)
  1. FYCOMPA [Suspect]
     Active Substance: PERAMPANEL
     Route: 048
     Dates: start: 20170310, end: 20170406
  2. SELBEX [Concomitant]
     Active Substance: TEPRENONE
     Indication: ABDOMINAL DISCOMFORT
     Route: 048
     Dates: start: 20070406, end: 20170805
  3. LANDSEN [Concomitant]
     Active Substance: CLONAZEPAM
     Indication: EPILEPSY
     Route: 048
     Dates: start: 20140919, end: 20170805
  4. FYCOMPA [Suspect]
     Active Substance: PERAMPANEL
     Route: 048
     Dates: start: 20170609, end: 20170804
  5. FYCOMPA [Suspect]
     Active Substance: PERAMPANEL
     Indication: EPILEPSY
     Route: 048
     Dates: start: 20170210, end: 20170309
  6. FYCOMPA [Suspect]
     Active Substance: PERAMPANEL
     Route: 048
     Dates: start: 20170407, end: 20170420
  7. TSUMURA RYOKEIJUTSUKANTO EXTRACT GRANULES FOR ETHICAL USE [Concomitant]
     Indication: DIZZINESS
     Route: 048
     Dates: end: 20170805
  8. HORIZON [Concomitant]
     Active Substance: DIAZEPAM
     Indication: INSOMNIA
     Route: 048
     Dates: start: 20041015, end: 20170805
  9. LENDORMIN [Concomitant]
     Active Substance: BROTIZOLAM
     Indication: INSOMNIA
     Route: 048
     Dates: start: 20050208, end: 20170805
  10. PONSTEL [Concomitant]
     Active Substance: MEFENAMIC ACID
     Indication: HEADACHE
     Route: 048
     Dates: start: 20070831, end: 20170805
  11. DEPAKENE [Concomitant]
     Active Substance: VALPROIC ACID
     Route: 048
     Dates: start: 20170310
  12. HORIZON [Concomitant]
     Active Substance: DIAZEPAM
     Indication: ANXIETY
  13. BUFFERIN [Concomitant]
     Active Substance: ASPIRIN
     Indication: HEADACHE
     Route: 048
  14. FYCOMPA [Suspect]
     Active Substance: PERAMPANEL
     Route: 048
     Dates: start: 20170421, end: 20170421
  15. FYCOMPA [Suspect]
     Active Substance: PERAMPANEL
     Route: 048
     Dates: start: 20170519, end: 20170608
  16. E KEPPRA [Concomitant]
     Active Substance: LEVETIRACETAM
     Indication: EPILEPSY
     Route: 048
     Dates: start: 20121116, end: 20170805
  17. DEPAKENE [Concomitant]
     Active Substance: VALPROIC ACID
     Indication: EPILEPSY
     Route: 048
     Dates: end: 20170309

REACTIONS (2)
  - Completed suicide [Fatal]
  - Dizziness [Recovered/Resolved]

NARRATIVE: CASE EVENT DATE: 20170407
